FAERS Safety Report 16962347 (Version 1)
Quarter: 2019Q4

REPORT INFORMATION
  Report Type: Spontaneous
  Country: US (occurrence: US)
  Receive Date: 20190907
  Receipt Date: 20190907
  Transmission Date: 20200122
  Serious: No
  Sender: FDA-Public Use
  Company Number: None

PATIENT

DRUGS (1)
  1. FONDAPARINUX 10MG/0.8ML PFS [Suspect]
     Active Substance: FONDAPARINUX
     Indication: EMBOLISM
     Route: 058
     Dates: start: 201902

REACTIONS (2)
  - Thrombosis [None]
  - Product dose omission [None]

NARRATIVE: CASE EVENT DATE: 20190907
